FAERS Safety Report 18665056 (Version 1)
Quarter: 2020Q4

REPORT INFORMATION
  Report Type: Spontaneous
  Country: JP (occurrence: JP)
  Receive Date: 20201225
  Receipt Date: 20201225
  Transmission Date: 20210114
  Serious: Yes (Hospitalization)
  Sender: FDA-Public Use
  Company Number: JP-ROCHE-2738941

PATIENT
  Age: 53 Year
  Sex: Male

DRUGS (3)
  1. ACTEMRA [Suspect]
     Active Substance: TOCILIZUMAB
     Indication: COVID-19 PNEUMONIA
     Route: 041
     Dates: start: 20201125, end: 20201125
  2. AVIGAN [Concomitant]
     Active Substance: FAVIPIRAVIR
     Indication: COVID-19
     Dosage: DOSAGE IS UNCERTAIN.
     Route: 065
     Dates: start: 2020
  3. ACTEMRA [Suspect]
     Active Substance: TOCILIZUMAB
     Dosage: DATE OF MOST RECENT DOSE OF TOCILIZUMAB: 27/NOV/2020
     Route: 041
     Dates: start: 20201127

REACTIONS (3)
  - Disease progression [Recovering/Resolving]
  - Intentional product use issue [Unknown]
  - Off label use [Unknown]

NARRATIVE: CASE EVENT DATE: 20201125
